FAERS Safety Report 5576147-3 (Version None)
Quarter: 2007Q4

REPORT INFORMATION
  Report Type: 
  Country: None (occurrence: None)
  Receive Date: 20071226
  Receipt Date: 20071210
  Transmission Date: 20080405
  Serious: Yes (Death)
  Sender: FDA-Public Use
  Company Number: ADE2007-0084

PATIENT
  Age: 78 Year
  Sex: Female

DRUGS (7)
  1. SIMVASTATIN [Suspect]
     Indication: CARDIOVASCULAR EVENT PROPHYLAXIS
     Dosage: 10MG - DAILY- PO
     Route: 048
     Dates: end: 20070912
  2. AMITRIPTYLINE 30MG [Concomitant]
  3. ASPIRIN [Concomitant]
  4. BENDROFLUAZIDE 25MG [Concomitant]
  5. GLIMEPIRIDE [Concomitant]
  6. METFORMIN 2550MG [Concomitant]
  7. THYROXINE 100MCG [Concomitant]

REACTIONS (1)
  - DEATH [None]
